FAERS Safety Report 17065565 (Version 3)
Quarter: 2025Q3

REPORT INFORMATION
  Report Type: Spontaneous
  Country: EU (occurrence: EU)
  Receive Date: 20191122
  Receipt Date: 20250917
  Transmission Date: 20251020
  Serious: Yes (Other)
  Sender: MYLAN
  Company Number: EU-TEVA-2019-CZ-1065148

PATIENT
  Sex: Male

DRUGS (9)
  1. OXALIPLATIN [Suspect]
     Active Substance: OXALIPLATIN
     Indication: Colorectal cancer
  2. CAPECITABINE [Suspect]
     Active Substance: CAPECITABINE
     Indication: Colorectal cancer
  3. BEVACIZUMAB [Suspect]
     Active Substance: BEVACIZUMAB
     Indication: Colorectal cancer
     Dates: start: 201502, end: 201703
  4. TIPIRACIL HYDROCHLORIDE\TRIFLURIDINE [Concomitant]
     Active Substance: TIPIRACIL HYDROCHLORIDE\TRIFLURIDINE
     Indication: Colorectal cancer
  5. TIPIRACIL HYDROCHLORIDE\TRIFLURIDINE [Concomitant]
     Active Substance: TIPIRACIL HYDROCHLORIDE\TRIFLURIDINE
     Dosage: 140 MILLIGRAM, QD (ON DAYS 1-5 AND 8-12)
     Dates: start: 201806
  6. LEUCOVORIN [Concomitant]
     Active Substance: LEUCOVORIN\LEUCOVORIN CALCIUM
     Indication: Colorectal cancer
  7. REGORAFENIB [Concomitant]
     Active Substance: REGORAFENIB
     Indication: Colorectal cancer
  8. FLUOROURACIL [Concomitant]
     Active Substance: FLUOROURACIL
     Indication: Colorectal cancer
     Dates: start: 201502
  9. IRINOTECAN [Concomitant]
     Active Substance: IRINOTECAN
     Indication: Colorectal cancer
     Dates: start: 201502

REACTIONS (3)
  - Haematotoxicity [Recovered/Resolved]
  - Neurotoxicity [Recovered/Resolved]
  - Nephrotic syndrome [Unknown]

NARRATIVE: CASE EVENT DATE: 20170301
